FAERS Safety Report 21873611 (Version 1)
Quarter: 2023Q1

REPORT INFORMATION
  Report Type: Spontaneous
  Country: US (occurrence: US)
  Receive Date: 20230117
  Receipt Date: 20230117
  Transmission Date: 20230418
  Serious: No
  Sender: FDA-Public Use
  Company Number: US-BRISTOL-MYERS SQUIBB COMPANY-2023-007392

PATIENT
  Age: 73 Year
  Sex: Female
  Weight: 131.54 kg

DRUGS (1)
  1. REVLIMID [Suspect]
     Active Substance: LENALIDOMIDE
     Indication: Plasma cell myeloma
     Dosage: FREQUENCY-DAILY 1-21, THEN 7 DAYS OFF
     Route: 048
     Dates: start: 20230101

REACTIONS (2)
  - Hypotension [Not Recovered/Not Resolved]
  - Full blood count abnormal [Not Recovered/Not Resolved]
